FAERS Safety Report 5273408-2 (Version None)
Quarter: 2007Q1

REPORT INFORMATION
  Report Type: 
  Country: None (occurrence: None)
  Receive Date: 20070320
  Receipt Date: 20070305
  Transmission Date: 20070707
  Serious: Yes (Other)
  Sender: FDA-Public Use
  Company Number: 2007VX000484

PATIENT
  Age: 65 Year
  Sex: Male

DRUGS (7)
  1. LIBRAX [Suspect]
     Indication: DIVERTICULUM
     Dates: start: 20070115, end: 20070224
  2. LIBRAX [Suspect]
     Indication: DIVERTICULUM
     Dates: start: 20070210
  3. PLAVIX [Concomitant]
  4. KARGEDIC [Concomitant]
  5. BISOPROLOL [Concomitant]
  6. MOVICOL [Concomitant]
  7. TRANSILANE [Concomitant]

REACTIONS (10)
  - ANGINA PECTORIS [None]
  - BLOOD IRON INCREASED [None]
  - CHONDROCALCINOSIS [None]
  - DYSURIA [None]
  - ELECTROCARDIOGRAM ABNORMAL [None]
  - FLATULENCE [None]
  - HEPATOCELLULAR DAMAGE [None]
  - INFREQUENT BOWEL MOVEMENTS [None]
  - MUSCLE SPASMS [None]
  - OSTEOARTHRITIS [None]
